FAERS Safety Report 14006884 (Version 2)
Quarter: 2017Q4

REPORT INFORMATION
  Report Type: Spontaneous
  Country: US (occurrence: US)
  Receive Date: 20170925
  Receipt Date: 20171107
  Transmission Date: 20180321
  Serious: Yes (Hospitalization)
  Sender: FDA-Public Use
  Company Number: US-PFIZER INC-2017409477

PATIENT
  Age: 71 Year
  Sex: Female
  Weight: 66 kg

DRUGS (5)
  1. TORADOL [Concomitant]
     Active Substance: KETOROLAC TROMETHAMINE
     Dosage: 15 MG, UNK
     Route: 042
  2. ROCEPHIN [Concomitant]
     Active Substance: CEFTRIAXONE SODIUM
     Dosage: UNK (MINI BAG PLUS)
     Route: 042
  3. KEFLEX [Concomitant]
     Active Substance: CEPHALEXIN
     Dosage: 2000 MG, 4X/DAY
     Dates: start: 20170919, end: 20170925
  4. ZYVOX [Suspect]
     Active Substance: LINEZOLID
     Indication: PERIPHERAL SWELLING
     Dosage: 600 MG, SINGLE (2 HOURS, 600 MG, IVPB)
     Route: 042
     Dates: start: 20170918, end: 20170919
  5. ZYVOX [Suspect]
     Active Substance: LINEZOLID
     Indication: INFECTION

REACTIONS (3)
  - Tendonitis [Recovered/Resolved]
  - Erythema [Recovered/Resolved]
  - Drug ineffective [Recovered/Resolved]

NARRATIVE: CASE EVENT DATE: 20170918
